FAERS Safety Report 7515688-6 (Version None)
Quarter: 2011Q2

REPORT INFORMATION
  Report Type: 
  Country: None (occurrence: None)
  Receive Date: 20110601
  Receipt Date: 20100726
  Transmission Date: 20111010
  Serious: No
  Sender: FDA-Public Use
  Company Number: US-PFIZER INC-2010094008

PATIENT
  Sex: Male

DRUGS (2)
  1. CHANTIX [Suspect]
     Dosage: 1 MG IN THE MORNING
     Dates: start: 20100726
  2. CHANTIX [Suspect]
     Dosage: UNK

REACTIONS (2)
  - NAUSEA [None]
  - HEADACHE [None]
